FAERS Safety Report 15488652 (Version 1)
Quarter: 2018Q4

REPORT INFORMATION
  Report Type: Spontaneous
  Country: BR (occurrence: BR)
  Receive Date: 20181011
  Receipt Date: 20181011
  Transmission Date: 20190205
  Serious: Yes (Hospitalization, Other)
  Sender: FDA-Public Use
  Company Number: BR-PFIZER INC-2018394705

PATIENT
  Age: 58 Year
  Sex: Male

DRUGS (6)
  1. LOSARTAN. [Concomitant]
     Active Substance: LOSARTAN
     Dosage: UNK
  2. LORAX [Suspect]
     Active Substance: LORAZEPAM
     Indication: ANXIETY
     Dosage: ONE TABLET OF 1MG IN THE MORNING AND 1 TABLET OF 2MG AT NIGHT
  3. HYDROCHLOROTHIAZIDE. [Concomitant]
     Active Substance: HYDROCHLOROTHIAZIDE
     Dosage: UNK
  4. ATENOLOL. [Concomitant]
     Active Substance: ATENOLOL
     Dosage: UNK
     Dates: start: 2016
  5. GALVUS MET [Concomitant]
     Active Substance: METFORMIN HYDROCHLORIDE\VILDAGLIPTIN
     Dosage: UNK
     Dates: start: 2016
  6. ASPIRINA PREVENT [Concomitant]
     Active Substance: ASPIRIN
     Dosage: UNK
     Dates: start: 2016

REACTIONS (3)
  - Myocardial infarction [Recovered/Resolved]
  - Insomnia [Recovered/Resolved]
  - Product use issue [Unknown]

NARRATIVE: CASE EVENT DATE: 201605
